FAERS Safety Report 8588479-5 (Version None)
Quarter: 2012Q3

REPORT INFORMATION
  Report Type: 
  Country: None (occurrence: None)
  Receive Date: 20120813
  Receipt Date: 20120730
  Transmission Date: 20120928
  Serious: No
  Sender: FDA-Public Use
  Company Number: US-BAYER-2012-061481

PATIENT
  Age: 56 Year
  Sex: Male

DRUGS (2)
  1. NEXAVAR [Suspect]
     Dosage: 200 MG AM; 400MG PM
  2. NEXAVAR [Suspect]
     Indication: URETERAL NEOPLASM
     Dosage: 200 MG AM, 400 MG PM
     Dates: start: 20110901, end: 20120612

REACTIONS (7)
  - FATIGUE [None]
  - FURUNCLE [None]
  - ERYTHEMA [None]
  - SKIN DISORDER [None]
  - RASH [None]
  - PAIN IN EXTREMITY [None]
  - SKIN INFECTION [None]
